FAERS Safety Report 5278634-4 (Version None)
Quarter: 2007Q1

REPORT INFORMATION
  Report Type: 
  Country: None (occurrence: None)
  Receive Date: 20070322
  Receipt Date: 20070307
  Transmission Date: 20070707
  Serious: No
  Sender: FDA-Public Use
  Company Number: TPA2007A00452

PATIENT
  Age: 21 Year
  Sex: Male
  Weight: 70.3075 kg

DRUGS (2)
  1. ROZEREM [Suspect]
     Indication: CIRCADIAN RHYTHM SLEEP DISORDER
     Dosage: SEE IMAGE
     Route: 048
     Dates: start: 20070306, end: 20070306
  2. ROZEREM [Suspect]
     Indication: CIRCADIAN RHYTHM SLEEP DISORDER
     Dosage: SEE IMAGE
     Route: 048
     Dates: start: 20070307

REACTIONS (2)
  - INITIAL INSOMNIA [None]
  - TACHYPHRENIA [None]
